FAERS Safety Report 5444125-0 (Version None)
Quarter: 2007Q3

REPORT INFORMATION
  Report Type: 
  Country: None (occurrence: None)
  Receive Date: 20070831
  Receipt Date: 20070823
  Transmission Date: 20080115
  Serious: Yes (Hospitalization)
  Sender: FDA-Public Use
  Company Number: 2007SP016204

PATIENT
  Age: 75 Year
  Weight: 50 kg

DRUGS (2)
  1. TEMOZOLOMIDE [Suspect]
     Indication: GLIOBLASTOMA MULTIFORME
     Dosage: 110 MG; QD
     Dates: start: 20070715, end: 20070803
  2. RISPERDAL (CON.) [Concomitant]

REACTIONS (7)
  - ASTHENIA [None]
  - BLOOD BILIRUBIN INCREASED [None]
  - DEHYDRATION [None]
  - HYPERGLYCAEMIA [None]
  - HYPONATRAEMIA [None]
  - TRANSAMINASES INCREASED [None]
  - VOMITING [None]
